FAERS Safety Report 23090504 (Version 4)
Quarter: 2023Q4

REPORT INFORMATION
  Report Type: Report from Study
  Country: US (occurrence: US)
  Receive Date: 20231020
  Receipt Date: 20231215
  Transmission Date: 20240109
  Serious: Yes (Other)
  Sender: FDA-Public Use
  Company Number: US-SEATTLE GENETICS-2023SGN11279

PATIENT
  Sex: Female

DRUGS (3)
  1. TUCATINIB [Suspect]
     Active Substance: TUCATINIB
     Indication: Breast cancer female
     Route: 065
  2. TUCATINIB [Suspect]
     Active Substance: TUCATINIB
     Dosage: UNK
     Route: 065
  3. CAPECITABINE [Suspect]
     Active Substance: CAPECITABINE
     Indication: Breast cancer female
     Dosage: UNK
     Route: 065

REACTIONS (10)
  - Polyarthritis [Unknown]
  - Malignant neoplasm progression [Unknown]
  - Food aversion [Unknown]
  - Malaise [Unknown]
  - Decreased appetite [Unknown]
  - Skin exfoliation [Unknown]
  - Weight decreased [Unknown]
  - Laboratory test abnormal [Unknown]
  - Therapy non-responder [Unknown]
  - Hypervolaemia [Unknown]
